FAERS Safety Report 10908825 (Version 1)
Quarter: 2015Q1

REPORT INFORMATION
  Report Type: Spontaneous
  Country: US (occurrence: None)
  Receive Date: 20150309
  Receipt Date: 20150309
  Transmission Date: 20150721
  Serious: No
  Sender: FDA-Public Use
  Company Number: None

PATIENT
  Age: 65 Year
  Sex: Male

DRUGS (9)
  1. REBIF [Concomitant]
     Active Substance: INTERFERON BETA-1A
  2. NUVIGIL [Concomitant]
     Active Substance: ARMODAFINIL
  3. SIMVASTATIN. [Concomitant]
     Active Substance: SIMVASTATIN
  4. LISINOPRIL. [Concomitant]
     Active Substance: LISINOPRIL
  5. GABAPENTIN. [Concomitant]
     Active Substance: GABAPENTIN
  6. ZOLPIDEM [Concomitant]
     Active Substance: ZOLPIDEM\ZOLPIDEM TARTRATE
  7. AMPYRA [Concomitant]
     Active Substance: DALFAMPRIDINE
  8. AMPYRA [Suspect]
     Active Substance: DALFAMPRIDINE
     Indication: MULTIPLE SCLEROSIS
     Route: 048
     Dates: start: 201006, end: 201107
  9. TERAZOSIN [Concomitant]
     Active Substance: TERAZOSIN\TERAZOSIN HYDROCHLORIDE

REACTIONS (1)
  - Drug ineffective [None]

NARRATIVE: CASE EVENT DATE: 20130607
